FAERS Safety Report 5110591-3 (Version None)
Quarter: 2006Q3

REPORT INFORMATION
  Report Type: 
  Country: None (occurrence: None)
  Receive Date: 20060731
  Receipt Date: 20060612
  Transmission Date: 20061208
  Serious: No
  Sender: FDA-Public Use
  Company Number: 2006PV015484

PATIENT
  Age: 40 Year
  Sex: Female

DRUGS (2)
  1. BYETTA [Suspect]
     Indication: DIABETES MELLITUS NON-INSULIN-DEPENDENT
     Dosage: 5 MCG;BID;SC
     Route: 058
     Dates: start: 20051001
  2. GLUCOPHAGE [Concomitant]

REACTIONS (5)
  - COUGH [None]
  - EAR INFECTION [None]
  - SINUS CONGESTION [None]
  - WEIGHT DECREASED [None]
  - WHEEZING [None]
